FAERS Safety Report 6044098-6 (Version None)
Quarter: 2009Q1

REPORT INFORMATION
  Report Type: 
  Country: None (occurrence: None)
  Receive Date: 20090120
  Receipt Date: 20090116
  Transmission Date: 20090719
  Serious: Yes (Life-Threatening, Hospitalization)
  Sender: FDA-Public Use
  Company Number: B0554864A

PATIENT
  Age: 64 Year
  Sex: Male

DRUGS (7)
  1. CARVEDILOL [Suspect]
     Route: 065
     Dates: start: 20050101
  2. INHIBACE [Suspect]
     Route: 048
     Dates: start: 20050101
  3. ALCOHOL [Suspect]
     Indication: DRUG USE FOR UNKNOWN INDICATION
  4. SIMVASTATIN [Concomitant]
     Dosage: 20MG PER DAY
     Dates: start: 20050101
  5. ACETYLSALICYLIC ACID SRT [Concomitant]
     Dosage: 75MG PER DAY
     Dates: start: 20050101
  6. BETOPTIC [Concomitant]
     Dates: start: 20080101
  7. VITREOLENT [Concomitant]
     Dates: start: 20080101

REACTIONS (6)
  - DRUG INTERACTION [None]
  - FALL [None]
  - HEAD INJURY [None]
  - HYPOTONIA [None]
  - LOSS OF CONSCIOUSNESS [None]
  - SYNCOPE [None]
